FAERS Safety Report 5106476-9 (Version None)
Quarter: 2006Q3

REPORT INFORMATION
  Report Type: 
  Country: None (occurrence: None)
  Receive Date: 20060731
  Receipt Date: 20060206
  Transmission Date: 20061208
  Serious: Yes (Other)
  Sender: FDA-Public Use
  Company Number: US-JNJFOC-20060202089

PATIENT
  Age: 57 Year
  Sex: Female
  Weight: 81.6475 kg

DRUGS (5)
  1. RISPERSDAL (RISPERIDONE) UNSPECIFIED [Suspect]
     Indication: DRUG THERAPY
     Dosage: 3 MG,  IN 1 DAY, ORAL
     Route: 048
     Dates: start: 20050101, end: 20050601
  2. ZOLOFT [Concomitant]
  3. CLONAPIN () CLONAZEPAM [Concomitant]
  4. SEOQUEL () QUETIAPINE FUMARATE [Concomitant]
  5. LAMICTAL [Concomitant]

REACTIONS (1)
  - TARDIVE DYSKINESIA [None]
